FAERS Safety Report 24317761 (Version 1)
Quarter: 2024Q3

REPORT INFORMATION
  Report Type: Spontaneous
  Country: US (occurrence: US)
  Receive Date: 20240913
  Receipt Date: 20240913
  Transmission Date: 20241016
  Serious: No
  Sender: ROCHE
  Company Number: US-ROCHE-10000074427

PATIENT
  Sex: Female

DRUGS (4)
  1. ACTEMRA ACTPEN [Suspect]
     Active Substance: TOCILIZUMAB
     Indication: Rheumatoid arthritis
     Dosage: STRENGTH: 162 MG/0.9ML, ROUTE- UNDER THE SKIN
     Route: 065
     Dates: start: 202408
  2. ARCALYST SDV [Concomitant]
     Indication: Pericardial disease
  3. ARCALYST SDV [Concomitant]
     Indication: Pericarditis
  4. ARCALYST SDV [Concomitant]
     Indication: Pyrexia

REACTIONS (2)
  - Contusion [Unknown]
  - Injury associated with device [Unknown]
